FAERS Safety Report 14674157 (Version 3)
Quarter: 2019Q1

REPORT INFORMATION
  Report Type: Other
  Country: CA (occurrence: CA)
  Receive Date: 20180323
  Receipt Date: 20190327
  Transmission Date: 20190417
  Serious: Yes (Hospitalization, Other)
  Sender: FDA-Public Use
  Company Number: CA-APOTEX-2018AP008229

PATIENT
  Sex: Female

DRUGS (5)
  1. ALVESCO [Suspect]
     Active Substance: CICLESONIDE
     Indication: PRODUCT USED FOR UNKNOWN INDICATION
     Dosage: 2 DF, QD
     Route: 050
  2. ALVESCO [Suspect]
     Active Substance: CICLESONIDE
     Dosage: 2 DF, QD
     Route: 065
  3. ATIVAN [Suspect]
     Active Substance: LORAZEPAM
     Indication: PRODUCT USED FOR UNKNOWN INDICATION
     Dosage: 0.25 MG, UNK
     Route: 060
  4. SALBUTAMOL [Suspect]
     Active Substance: ALBUTEROL
     Indication: PRODUCT USED FOR UNKNOWN INDICATION
     Dosage: 2 DF, QID
     Route: 050
  5. SALBUTAMOL [Suspect]
     Active Substance: ALBUTEROL
     Dosage: 2 DF, QID
     Route: 065

REACTIONS (8)
  - Chills [Not Recovered/Not Resolved]
  - Pain [Not Recovered/Not Resolved]
  - Crohn^s disease [Recovered/Resolved]
  - Pyrexia [Not Recovered/Not Resolved]
  - Abscess [Recovered/Resolved]
  - Intestinal resection [Recovered/Resolved]
  - Abdominal abscess [Not Recovered/Not Resolved]
  - Malaise [Not Recovered/Not Resolved]
